FAERS Safety Report 17102945 (Version 1)
Quarter: 2019Q4

REPORT INFORMATION
  Report Type: Report from Study
  Country: None (occurrence: CA)
  Receive Date: 20191203
  Receipt Date: 20191203
  Transmission Date: 20200122
  Serious: Yes (Other)
  Sender: FDA-Public Use
  Company Number: CA-ABBVIE-19K-028-2848257-00

PATIENT
  Age: 43 Year
  Sex: Female

DRUGS (1)
  1. HUMIRA [Suspect]
     Active Substance: ADALIMUMAB
     Indication: CROHN^S DISEASE
     Route: 058
     Dates: start: 20190329, end: 20190607

REACTIONS (9)
  - Arthralgia [Unknown]
  - Systemic lupus erythematosus [Unknown]
  - Rash erythematous [Unknown]
  - Abdominal distension [Unknown]
  - Contusion [Unknown]
  - Urticaria [Unknown]
  - Hot flush [Unknown]
  - Abdominal pain [Unknown]
  - Hypersensitivity [Unknown]

NARRATIVE: CASE EVENT DATE: 2019
